FAERS Safety Report 6168865-3 (Version None)
Quarter: 2009Q2

REPORT INFORMATION
  Report Type: 
  Country: None (occurrence: None)
  Receive Date: 20090427
  Receipt Date: 20090416
  Transmission Date: 20091009
  Serious: Yes (Hospitalization)
  Sender: FDA-Public Use
  Company Number: FR-WYE-H09028509

PATIENT
  Sex: Male

DRUGS (4)
  1. INIPOMP [Suspect]
     Dosage: UNKNOWN
     Route: 048
     Dates: start: 20090101, end: 20090101
  2. MODOPAR [Concomitant]
     Dosage: UNKNOWN
     Dates: start: 19940101, end: 20090301
  3. DITROPAN [Concomitant]
     Dosage: UNKNOWN
     Dates: start: 19940101
  4. VOLTAREN [Suspect]
     Indication: BONE PAIN
     Dosage: UNKNOWN
     Route: 048
     Dates: start: 20090101, end: 20090317

REACTIONS (1)
  - AGRANULOCYTOSIS [None]
